FAERS Safety Report 26153907 (Version 2)
Quarter: 2025Q4

REPORT INFORMATION
  Report Type: Report from Study
  Country: US (occurrence: US)
  Receive Date: 20251214
  Receipt Date: 20251218
  Transmission Date: 20260117
  Serious: Yes (Other)
  Sender: ABBVIE
  Company Number: US-ABBVIE-6584445

PATIENT
  Age: 64 Year
  Sex: Female

DRUGS (1)
  1. HUMIRA [Suspect]
     Active Substance: ADALIMUMAB
     Indication: Product used for unknown indication
     Route: 058
     Dates: start: 20221220

REACTIONS (3)
  - Rotator cuff syndrome [Recovering/Resolving]
  - Musculoskeletal disorder [Unknown]
  - Procedural pain [Unknown]

NARRATIVE: CASE EVENT DATE: 20250101
